FAERS Safety Report 12159730 (Version 1)
Quarter: 2016Q1

REPORT INFORMATION
  Report Type: Spontaneous
  Country: US (occurrence: None)
  Receive Date: 20160307
  Receipt Date: 20160307
  Transmission Date: 20160526
  Serious: No
  Sender: FDA-Public Use
  Company Number: None

PATIENT
  Age: 26 Year
  Sex: Male
  Weight: 52.5 kg

DRUGS (18)
  1. LOPERAMIDE [Concomitant]
     Active Substance: LOPERAMIDE
  2. TPN (DEXTROSE, AMINO ACID, CALCIUM GLUCONATE, MAGNESIUM SULFATE, POTASSIUM CHLORIDE, SODIUM CHLORIDE, SODIUM PHOSPHATE, MVI-12, THIAMINE, FAMOTIDINE, ZINC, ASCORBIC ACID, L-CARNITINE) [Concomitant]
  3. ATROPINE-DIPHENOXYLATE [Concomitant]
  4. PANCRELIPASE. [Concomitant]
     Active Substance: PANCRELIPASE
  5. VENLAFAXINE [Concomitant]
     Active Substance: VENLAFAXINE HYDROCHLORIDE
  6. ACETAMINOPHEN-HYDROCODONE [Concomitant]
  7. CHLORHEXIDINE [Concomitant]
     Active Substance: CHLORHEXIDINE
  8. PROPRANOLOL [Concomitant]
     Active Substance: PROPRANOLOL\PROPRANOLOL HYDROCHLORIDE
  9. GABAPENTIN. [Concomitant]
     Active Substance: GABAPENTIN
  10. QUETIAPINE [Concomitant]
     Active Substance: QUETIAPINE
  11. HYDROMORPHONE [Concomitant]
     Active Substance: HYDROMORPHONE
  12. TPN (DEXTROSE, AMINO ACID, CALCIUM GLUCONATE, MAGNESIUM SULFATE, POTASSIUM CHLORIDE, SODIUM CHLORIDE, SODIUM ACETATE, SODIUM PHOSPHATE, MVI-12, MTE-5 STANDARD TRACE ELEMENTS, THIAMINE, FAMOTIDINE, ZINC, ASCORBIC ACID) [Concomitant]
  13. CHOLECALCIFEROL [Concomitant]
     Active Substance: CHOLECALCIFEROL
  14. COLESEVELAM [Concomitant]
     Active Substance: COLESEVELAM
  15. COSYNTROPIN. [Concomitant]
     Active Substance: COSYNTROPIN
  16. FERRIC CARBOXYMALTOSE [Suspect]
     Active Substance: FERRIC CARBOXYMALTOSE
     Indication: ANAEMIA
     Dates: start: 20160225
  17. FLUTICASONE-VILANTEROL [Concomitant]
  18. FONDAPARINUX [Concomitant]
     Active Substance: FONDAPARINUX

REACTIONS (1)
  - Hypophosphataemia [None]

NARRATIVE: CASE EVENT DATE: 20160225
